FAERS Safety Report 5650092-7 (Version None)
Quarter: 2008Q1

REPORT INFORMATION
  Report Type: 
  Country: None (occurrence: None)
  Receive Date: 20080303
  Receipt Date: 20080218
  Transmission Date: 20080703
  Serious: Yes (Hospitalization, Other)
  Sender: FDA-Public Use
  Company Number: 2007BI020107

PATIENT
  Age: 65 Year
  Sex: Male

DRUGS (10)
  1. AVONEX [Suspect]
     Indication: MULTIPLE SCLEROSIS
     Dosage: 30 UG; QW; IM
     Route: 030
     Dates: start: 19961001
  2. ALBUMIN NEBULIZER [Concomitant]
  3. BACLOFEN [Concomitant]
  4. LASIX [Concomitant]
  5. HEPARIN [Concomitant]
  6. SYNTHROID [Concomitant]
  7. LISINOPRIL [Concomitant]
  8. LOPRESSOR [Concomitant]
  9. OXYBUTYNIN CHLORIDE [Concomitant]
  10. PRILOSEC [Concomitant]

REACTIONS (12)
  - CHOLELITHIASIS [None]
  - CONSTIPATION [None]
  - DEHYDRATION [None]
  - DIVERTICULUM [None]
  - HEART RATE IRREGULAR [None]
  - HIATUS HERNIA [None]
  - HYPOTENSION [None]
  - ILEUS [None]
  - ORAL INTAKE REDUCED [None]
  - PNEUMONIA [None]
  - RENAL FAILURE [None]
  - TACHYCARDIA [None]
